FAERS Safety Report 6518955-8 (Version None)
Quarter: 2009Q4

REPORT INFORMATION
  Report Type: 
  Country: None (occurrence: None)
  Receive Date: 20091228
  Receipt Date: 20091221
  Transmission Date: 20100525
  Serious: Yes (Other)
  Sender: FDA-Public Use
  Company Number: CHPA2009US23838

PATIENT
  Age: 24 Year
  Sex: Female
  Weight: 65.76 kg

DRUGS (2)
  1. THERAFLU DAYTIME SEVERE COLD + COUGH [Suspect]
     Dosage: 1 DF, ONCE/SINGLE
     Route: 048
     Dates: start: 20091201, end: 20091201
  2. THERAFLU NIGHTTIME SEVERE COLD + COUGH (NCH) [Suspect]
     Dosage: 1 DF, ONCE/SINGLE
     Route: 048
     Dates: start: 20091201, end: 20091201

REACTIONS (5)
  - DYSPNOEA [None]
  - EYE SWELLING [None]
  - OEDEMA PERIPHERAL [None]
  - SWELLING [None]
  - SWELLING FACE [None]
